FAERS Safety Report 6486621-3 (Version None)
Quarter: 2009Q4

REPORT INFORMATION
  Report Type: 
  Country: None (occurrence: None)
  Receive Date: 20091209
  Receipt Date: 20091209
  Transmission Date: 20100525
  Serious: Yes (Hospitalization)
  Sender: FDA-Public Use
  Company Number: None

PATIENT
  Sex: Male
  Weight: 81.6 kg

DRUGS (2)
  1. CARIMUNE NF [Suspect]
     Indication: GUILLAIN-BARRE SYNDROME
     Dosage: 30 GRAMS DAILY IV DRIP
     Route: 041
     Dates: start: 20090924, end: 20090928
  2. CARIMUNE NF [Suspect]

REACTIONS (2)
  - DIALYSIS [None]
  - RENAL FAILURE ACUTE [None]
